FAERS Safety Report 10469314 (Version 1)
Quarter: 2014Q3

REPORT INFORMATION
  Report Type: Spontaneous
  Country: US (occurrence: None)
  Receive Date: 20140922
  Receipt Date: 20140922
  Transmission Date: 20150326
  Serious: Yes (Hospitalization)
  Sender: FDA-Public Use
  Company Number: None

PATIENT
  Age: 48 Year
  Sex: Male

DRUGS (3)
  1. RIBASPHERE/RIBAVIRIN [Concomitant]
  2. PEGASYS [Concomitant]
     Active Substance: PEGINTERFERON ALFA-2A
  3. SOVALDI [Suspect]
     Active Substance: SOFOSBUVIR
     Indication: HEPATITIS C
     Dosage: ONE TABLET QD ORAL
     Route: 048

REACTIONS (3)
  - Haematochezia [None]
  - Alcohol withdrawal syndrome [None]
  - Abdominal pain [None]

NARRATIVE: CASE EVENT DATE: 20140919
